FAERS Safety Report 8328070-9 (Version None)
Quarter: 2012Q2

REPORT INFORMATION
  Report Type: 
  Country: None (occurrence: None)
  Receive Date: 20120502
  Receipt Date: 20120426
  Transmission Date: 20120825
  Serious: Yes (Death, Life-Threatening, Hospitalization, Other)
  Sender: FDA-Public Use
  Company Number: PHHY2011JP88167

PATIENT
  Sex: Male

DRUGS (33)
  1. SEISHOKU [Concomitant]
     Dosage: 10 ML, DAILY
  2. SEISHOKU [Concomitant]
     Dosage: 100 ML, DAILY
     Dates: start: 20111002, end: 20111004
  3. GLUCOSE [Concomitant]
     Dosage: 500 ML
     Dates: start: 20111004
  4. GLUCOSE [Concomitant]
     Dosage: 1000 ML
     Dates: end: 20111005
  5. GLYCYRRHIZIC ACID, AMMONIUM SALT [Concomitant]
     Dosage: 60 ML
     Dates: start: 20111005, end: 20111005
  6. HYDROXYUREA [Concomitant]
  7. TASIGNA [Suspect]
     Dosage: 300 MG, UNK
     Route: 048
  8. TOFRANIL [Concomitant]
     Dosage: 30 MG, DAILY
     Route: 048
     Dates: start: 20110927
  9. MAGNESIUM OXIDE [Concomitant]
     Dosage: 1 G, DAILY
     Route: 048
     Dates: start: 20111001
  10. MUCODYNE [Concomitant]
     Dosage: 1500 MG, DAILY
     Route: 048
     Dates: start: 20111001
  11. FAMOTIDINE [Concomitant]
     Dosage: 20 MG, DAILY
     Dates: start: 20110927, end: 20111003
  12. PURSENNID [Concomitant]
     Dosage: UNK UKN, UNK
     Dates: start: 20110928
  13. MEILAX [Concomitant]
     Dosage: 1 MG, DAILY
     Route: 048
     Dates: start: 20110927
  14. HYDREA [Concomitant]
     Dosage: 1000 MG, DAILY
     Route: 048
     Dates: start: 20110928, end: 20111001
  15. COTRIM [Concomitant]
     Dosage: 2 DF, DAILY
     Route: 048
     Dates: start: 20111002, end: 20111003
  16. HEPARIN SODIUM [Concomitant]
     Dosage: 10000 IU, DAILY
     Dates: start: 20110927
  17. SODIUM CHLORIDE SOLUTION [Concomitant]
     Dosage: 500 MG, DAILY
     Dates: start: 20110927
  18. PACIL [Concomitant]
     Dosage: 1000 MG, DAILY
     Dates: start: 20111002
  19. ZOLPIDEM [Concomitant]
     Dosage: 5 MG, DAILY
     Route: 048
     Dates: start: 20110927, end: 20111003
  20. TOFRANIL [Concomitant]
     Dosage: 10 MG, DAILY
     Route: 048
  21. TASIGNA [Suspect]
     Indication: CHRONIC MYELOID LEUKAEMIA
     Dosage: 150 MG, QD
     Route: 048
     Dates: start: 20111003, end: 20111003
  22. HALCION [Concomitant]
     Dosage: 0.25 MG, DAILY
     Route: 048
     Dates: start: 20110927, end: 20111003
  23. DEXALTIN [Concomitant]
     Dosage: UNK UKN, UNK
  24. LAXOBERON [Concomitant]
     Dosage: UNK UKN, UNK
     Dates: start: 20110929
  25. MUCODYNE [Concomitant]
     Dosage: 1000 MG, DAILY
     Route: 048
  26. SILECE [Concomitant]
     Dosage: 2 MG, DAILY
     Route: 048
     Dates: start: 20110927, end: 20111002
  27. MEILAX [Concomitant]
     Dosage: 1 MG, DAILY
  28. ALLOPURINOL [Concomitant]
     Dosage: 200 MG, DAILY
     Route: 048
     Dates: start: 20110927, end: 20111003
  29. HYDREA [Concomitant]
     Dosage: 1500 MG, DAILY
     Dates: start: 20111002, end: 20111003
  30. LENDORMIN [Concomitant]
     Dosage: UNK UKN, UNK
     Route: 048
     Dates: start: 20111001
  31. SEISHOKU [Concomitant]
     Dosage: 20 ML, DAILY
     Dates: start: 20111002
  32. FUNGUARD [Concomitant]
     Dosage: 150 MG, UNK
     Dates: start: 20111002, end: 20111004
  33. PREDNISOLONE [Concomitant]
     Dosage: 60 MG, DAILY
     Dates: start: 20111002, end: 20111003

REACTIONS (21)
  - HEPATITIS FULMINANT [None]
  - NAUSEA [None]
  - DECREASED APPETITE [None]
  - ABDOMINAL PAIN UPPER [None]
  - COMA [None]
  - SUBCUTANEOUS HAEMATOMA [None]
  - MULTI-ORGAN FAILURE [None]
  - URINE OUTPUT DECREASED [None]
  - DISSEMINATED INTRAVASCULAR COAGULATION [None]
  - HYPERPHOSPHATAEMIA [None]
  - JAUNDICE [None]
  - HYPERGLYCAEMIA [None]
  - NEOPLASM PROGRESSION [None]
  - NEOPLASM MALIGNANT [None]
  - HEPATIC NECROSIS [None]
  - ARTERIAL HAEMORRHAGE [None]
  - HEPATIC FAILURE [None]
  - HYPERKALAEMIA [None]
  - METABOLIC ACIDOSIS [None]
  - COAGULOPATHY [None]
  - TUMOUR LYSIS SYNDROME [None]
